FAERS Safety Report 8844122 (Version 3)
Quarter: 2013Q2

REPORT INFORMATION
  Report Type: Spontaneous
  Country: JP (occurrence: JP)
  Receive Date: 20121016
  Receipt Date: 20130416
  Transmission Date: 20140414
  Serious: Yes (Hospitalization, Other)
  Sender: FDA-Public Use
  Company Number: JP-JNJFOC-20121005110

PATIENT
  Age: 69 Year
  Sex: Female
  Weight: 50 kg

DRUGS (16)
  1. REMICADE [Suspect]
     Indication: RHEUMATOID ARTHRITIS
     Route: 042
     Dates: start: 20120306
  2. REMICADE [Suspect]
     Indication: RHEUMATOID ARTHRITIS
     Route: 042
     Dates: start: 201007
  3. PROGRAF [Suspect]
     Indication: RHEUMATIC DISORDER
     Route: 065
     Dates: start: 20120911
  4. METOLATE [Suspect]
     Indication: RHEUMATOID ARTHRITIS
     Route: 048
  5. BREDININ [Concomitant]
     Route: 048
     Dates: start: 20120911
  6. VILDAGLIPTIN [Concomitant]
     Route: 048
     Dates: start: 20120911
  7. RECALBON [Concomitant]
     Route: 048
     Dates: start: 20120911
  8. RIMATIL [Concomitant]
     Route: 048
  9. RIMATIL [Concomitant]
     Route: 048
     Dates: start: 2008
  10. ANTIBIOTIC AGENT [Concomitant]
     Route: 048
  11. PARIET [Concomitant]
     Route: 048
  12. PREDONINE [Concomitant]
     Route: 048
  13. JUVELA NICOTINATE [Concomitant]
     Route: 048
  14. MAGLAX [Concomitant]
     Route: 048
  15. LENDORMIN [Concomitant]
     Route: 048
  16. FOLIAMIN [Concomitant]
     Route: 048

REACTIONS (4)
  - Diabetes mellitus [Unknown]
  - Diffuse large B-cell lymphoma [Recovering/Resolving]
  - Joint injury [Unknown]
  - Rheumatoid arthritis [Unknown]
